FAERS Safety Report 8599180 (Version 4)
Quarter: 2013Q1

REPORT INFORMATION
  Report Type: Spontaneous
  Country: US (occurrence: US)
  Receive Date: 20120605
  Receipt Date: 20130320
  Transmission Date: 20140127
  Serious: Yes (Other)
  Sender: FDA-Public Use
  Company Number: US-ASTRAZENECA-2012SE33735

PATIENT
  Age: 76 Year
  Sex: Female
  Weight: 68.5 kg

DRUGS (27)
  1. SYMBICORT [Suspect]
     Indication: ASTHMA
     Dosage: 160/4.5 MCG, 2 PUFFS TWICE DAILY
     Route: 055
     Dates: start: 2010
  2. SYMBICORT [Suspect]
     Indication: ASTHMA
     Dosage: 160/4.5 MCG, 2 PUFFS TWICE DAILY
     Route: 055
     Dates: start: 2011
  3. LISINOPRIL [Suspect]
     Indication: HYPERTENSION
     Route: 048
  4. ANTIVERT [Suspect]
     Indication: DIZZINESS
     Dosage: 25 MG THREE TIMES DAILY AS NEEDED
     Route: 048
     Dates: start: 2013
  5. ANTIVERT [Suspect]
     Indication: VERTIGO
     Dosage: 25 MG THREE TIMES DAILY AS NEEDED
     Route: 048
     Dates: start: 2013
  6. GLUCOPHAGE [Concomitant]
     Indication: DIABETES MELLITUS
     Route: 048
  7. STARLIX [Concomitant]
     Indication: DIABETES MELLITUS
     Route: 048
  8. ANTIHYPERTENSIVES [Concomitant]
     Indication: HYPERTENSION
  9. SYNTHROID [Concomitant]
     Route: 048
  10. ALDACTAZIDE [Concomitant]
     Dosage: 25-25 MG, 0.5 TAB 3 TIMES WEEKLY
     Route: 048
  11. CARDIZEM CD [Concomitant]
     Route: 048
  12. PREVACID [Concomitant]
     Route: 048
  13. ECOTRIN [Concomitant]
     Route: 048
  14. NASALCROM [Concomitant]
     Route: 045
  15. DOCOSAHEXANOIC ACID/EPA [Concomitant]
     Dosage: DAILY
     Route: 048
  16. GARLIC [Concomitant]
     Route: 048
  17. GINKGO BILOBA [Concomitant]
     Route: 048
  18. LUTEIN [Concomitant]
     Route: 048
  19. MAGONATE [Concomitant]
     Route: 048
  20. CEROVITE [Concomitant]
     Route: 048
  21. ZOFRAN ODT [Concomitant]
     Dosage: 4 MG EVERY 6-8 HOURS AS NEEDED
     Route: 048
  22. PAPAYA ENZYME [Concomitant]
     Route: 048
  23. PRANDIN [Concomitant]
     Dosage: 0.5 MG THREE TIMES A DAY 30 MINUTES BEFORE MEALS
     Route: 048
  24. CO Q-10 [Concomitant]
     Dosage: DAILY
     Route: 048
  25. VITAMIN B COMPLEX [Concomitant]
     Dosage: DAILY
     Route: 048
  26. VITAMIN E [Concomitant]
     Route: 048
  27. ZOSTAVAX [Concomitant]
     Dosage: 19400 UNIT
     Route: 058

REACTIONS (24)
  - Haemorrhagic stroke [Unknown]
  - Brain injury [Unknown]
  - Cerebral haemorrhage [Unknown]
  - Cardiac failure congestive [Unknown]
  - Rotator cuff syndrome [Unknown]
  - Dyspnoea [Unknown]
  - Diabetes mellitus [Unknown]
  - Vertigo [Unknown]
  - Feeling abnormal [Unknown]
  - Muscle tightness [Unknown]
  - Vertigo [Unknown]
  - Aura [Unknown]
  - Hallucination, auditory [Unknown]
  - Hemiparesis [Unknown]
  - Speech disorder [Recovering/Resolving]
  - Joint range of motion decreased [Unknown]
  - Asthma [Unknown]
  - Hypothyroidism [Unknown]
  - Musculoskeletal pain [Unknown]
  - Dizziness [Unknown]
  - Hypertension [Unknown]
  - Headache [Unknown]
  - Drug hypersensitivity [Unknown]
  - Circumstance or information capable of leading to medication error [Unknown]
